FAERS Safety Report 15770672 (Version 4)
Quarter: 2019Q2

REPORT INFORMATION
  Report Type: Spontaneous
  Country: US (occurrence: US)
  Receive Date: 20181228
  Receipt Date: 20190507
  Transmission Date: 20190711
  Serious: No
  Sender: FDA-Public Use
  Company Number: US-PFIZER INC-2018528419

PATIENT
  Age: 69 Year
  Sex: Male
  Weight: 73.94 kg

DRUGS (5)
  1. XALKORI [Suspect]
     Active Substance: CRIZOTINIB
     Indication: LUNG CARCINOMA CELL TYPE UNSPECIFIED STAGE IV
     Dosage: 250 MG, TWICE A DAY
     Route: 048
     Dates: start: 20181211, end: 20190404
  2. FLECTOR [Concomitant]
     Active Substance: DICLOFENAC EPOLAMINE
     Indication: LIMB DISCOMFORT
     Dosage: UNK
     Dates: start: 20181219
  3. XALKORI [Suspect]
     Active Substance: CRIZOTINIB
     Indication: BRAIN NEOPLASM MALIGNANT
     Dosage: 1 DF, DAILY (1 PILL PER DAY)
     Dates: start: 20190219, end: 20190404
  4. XALKORI [Suspect]
     Active Substance: CRIZOTINIB
     Indication: HEPATIC CANCER
     Dosage: UNK, WEEKLY (TWICE DAILY = 2 PILLS PER WK)
     Dates: start: 20190117, end: 20190404
  5. VIMPAT [Concomitant]
     Active Substance: LACOSAMIDE
     Dosage: UNK
     Dates: start: 20190213

REACTIONS (4)
  - Nausea [Recovered/Resolved]
  - Malaise [Recovered/Resolved]
  - Decreased appetite [Recovered/Resolved]
  - Vomiting [Recovered/Resolved]

NARRATIVE: CASE EVENT DATE: 20181211
